FAERS Safety Report 16699288 (Version 1)
Quarter: 2019Q3

REPORT INFORMATION
  Report Type: Spontaneous
  Country: FR (occurrence: FR)
  Receive Date: 20190813
  Receipt Date: 20190813
  Transmission Date: 20191004
  Serious: Yes (Hospitalization)
  Sender: FDA-Public Use
  Company Number: FR-MYLANLABS-2019M1075202

PATIENT
  Age: 56 Year
  Sex: Male
  Weight: 71 kg

DRUGS (4)
  1. SPIRAMYCIN [Suspect]
     Active Substance: SPIRAMYCIN
     Indication: TOOTH INFECTION
     Dosage: NON PRECISEE
     Route: 048
     Dates: start: 20190123, end: 20190128
  2. CLAMOXYL                           /00249602/ [Suspect]
     Active Substance: AMOXICILLIN
     Indication: TOOTH INFECTION
     Dosage: 2 GRAM, TOTAL
     Route: 048
     Dates: start: 20190129, end: 20190129
  3. IBUPROFEN. [Suspect]
     Active Substance: IBUPROFEN
     Indication: PAIN
     Dosage: NON PRECISEE
     Route: 048
     Dates: start: 20190125, end: 20190128
  4. DAFALGAN CODEINE [Suspect]
     Active Substance: ACETAMINOPHEN\CODEINE PHOSPHATE
     Indication: PAIN
     Dosage: NON PRECISEE
     Route: 048
     Dates: start: 20190123, end: 20190128

REACTIONS (1)
  - Acute generalised exanthematous pustulosis [Recovered/Resolved]

NARRATIVE: CASE EVENT DATE: 20190129
